FAERS Safety Report 7821338-1 (Version None)
Quarter: 2011Q4

REPORT INFORMATION
  Report Type: 
  Country: None (occurrence: None)
  Receive Date: 20111018
  Receipt Date: 20110728
  Transmission Date: 20120403
  Serious: No
  Sender: FDA-Public Use
  Company Number: US-ASTRAZENECA-2011SE45428

PATIENT
  Age: 89 Year
  Sex: Male
  Weight: 73.9 kg

DRUGS (4)
  1. NEXIUM [Concomitant]
     Indication: GASTROOESOPHAGEAL REFLUX DISEASE
     Route: 048
  2. COLCORYS [Concomitant]
  3. SYMBICORT [Suspect]
     Indication: CHRONIC OBSTRUCTIVE PULMONARY DISEASE
     Dosage: AEROSOL, 160/4.5 MCG TWO PUFFS DAILY
     Route: 055
     Dates: start: 20100101
  4. VALIUM [Concomitant]
     Indication: SLEEP DISORDER
     Dosage: AS REQUIRED

REACTIONS (9)
  - THROAT IRRITATION [None]
  - INCORRECT DOSE ADMINISTERED [None]
  - COUGH [None]
  - EAR DISCOMFORT [None]
  - SINUS DISORDER [None]
  - ORAL CANDIDIASIS [None]
  - OROPHARYNGEAL PAIN [None]
  - CHILLS [None]
  - SINUSITIS [None]
